FAERS Safety Report 4932155-4 (Version None)
Quarter: 2006Q1

REPORT INFORMATION
  Report Type: 
  Country: None (occurrence: None)
  Receive Date: 20060227
  Receipt Date: 20060215
  Transmission Date: 20060701
  Serious: Yes (Hospitalization)
  Sender: FDA-Public Use
  Company Number: HQWYE615901FEB06

PATIENT
  Age: 47 Year
  Sex: Male

DRUGS (1)
  1. RAPAMUNE [Suspect]
     Indication: PROPHYLAXIS AGAINST TRANSPLANT REJECTION
     Dosage: 8 MG 1X PER 1 DAY
     Route: 048
     Dates: start: 20051116

REACTIONS (2)
  - BLOOD CREATINE INCREASED [None]
  - KIDNEY TRANSPLANT REJECTION [None]
